FAERS Safety Report 23700226 (Version 4)
Quarter: 2024Q3

REPORT INFORMATION
  Report Type: Spontaneous
  Country: US (occurrence: US)
  Receive Date: 20240403
  Receipt Date: 20240703
  Transmission Date: 20241017
  Serious: Yes (Hospitalization)
  Sender: Haleon PLC
  Company Number: US-HALEON-USCH2024015954

PATIENT

DRUGS (2)
  1. ROBITUSSIN HONEY SEVERE COUGH, FLU PLUS SORE THROAT [Suspect]
     Active Substance: ACETAMINOPHEN\DEXTROMETHORPHAN HYDROBROMIDE
     Indication: Product used for unknown indication
     Dosage: EXPDATE:202505EXPDATE:202505
  2. ROBITUSSIN HONEY SEVERE COUGH, FLU PLUS SORE THROAT [Suspect]
     Active Substance: ACETAMINOPHEN\DEXTROMETHORPHAN HYDROBROMIDE
     Dosage: EXPDATE:202503EXPDATE:202503

REACTIONS (11)
  - Pneumonia [Recovering/Resolving]
  - Sinusitis [Recovering/Resolving]
  - Bacterial infection [Recovering/Resolving]
  - Recalled product administered [Unknown]
  - Musculoskeletal discomfort [Unknown]
  - Economic problem [Unknown]
  - Alopecia [Unknown]
  - Impaired quality of life [Unknown]
  - Impaired work ability [Unknown]
  - Joint swelling [Unknown]
  - Laryngitis [Recovering/Resolving]
